FAERS Safety Report 5306972-5 (Version None)
Quarter: 2007Q2

REPORT INFORMATION
  Report Type: 
  Country: None (occurrence: None)
  Receive Date: 20070419
  Receipt Date: 20070403
  Transmission Date: 20071010
  Serious: Yes (Other)
  Sender: FDA-Public Use
  Company Number: PHEH2007US04651

PATIENT
  Age: 81 Year
  Sex: Male
  Weight: 87.9978 kg

DRUGS (2)
  1. VISUDYNE [Suspect]
     Indication: MACULAR DEGENERATION
     Dosage: 13.2 MG DAILY IV
     Route: 042
     Dates: start: 20070319, end: 20070319
  2. AVASTIN [Suspect]
     Dosage: 1.25 MG DAILY EY
     Dates: start: 20070319, end: 20070319

REACTIONS (4)
  - REFUSAL OF TREATMENT BY PATIENT [None]
  - RETINAL DISORDER [None]
  - VISION BLURRED [None]
  - VISUAL ACUITY REDUCED [None]
